FAERS Safety Report 9608399 (Version 2)
Quarter: 2013Q4

REPORT INFORMATION
  Report Type: Report from Study
  Country: AR (occurrence: AR)
  Receive Date: 20131009
  Receipt Date: 20131009
  Transmission Date: 20140711
  Serious: Yes (Other)
  Sender: FDA-Public Use
  Company Number: AR-ABBVIE-13P-007-1139013-00

PATIENT
  Age: 47 Year
  Sex: Male

DRUGS (1)
  1. HUMIRA [Suspect]
     Indication: RHEUMATOID ARTHRITIS
     Route: 058
     Dates: start: 20120701

REACTIONS (4)
  - Lower limb fracture [Recovering/Resolving]
  - Ankle fracture [Recovering/Resolving]
  - Hip fracture [Recovering/Resolving]
  - Fall [Unknown]
